FAERS Safety Report 13300842 (Version 1)
Quarter: 2017Q1

REPORT INFORMATION
  Report Type: Spontaneous
  Country: US (occurrence: US)
  Receive Date: 20170306
  Receipt Date: 20170306
  Transmission Date: 20170428
  Serious: Yes (Other)
  Sender: FDA-Public Use
  Company Number: None

PATIENT
  Age: 59 Year
  Sex: Male
  Weight: 71.1 kg

DRUGS (2)
  1. CEFUROXIME AXETIL. [Suspect]
     Active Substance: CEFUROXIME AXETIL
     Indication: PHARYNGITIS STREPTOCOCCAL
     Dosage: ?          OTHER ROUTE:INTERNAL?
  2. CEFUROXIME AXETIL. [Suspect]
     Active Substance: CEFUROXIME AXETIL
     Indication: SINUSITIS
     Dosage: ?          OTHER ROUTE:INTERNAL?

REACTIONS (2)
  - Chromaturia [None]
  - Vomiting [None]

NARRATIVE: CASE EVENT DATE: 20170303
